FAERS Safety Report 13949307 (Version 2)
Quarter: 2017Q4

REPORT INFORMATION
  Report Type: Spontaneous
  Country: AU (occurrence: AU)
  Receive Date: 20170908
  Receipt Date: 20171017
  Transmission Date: 20180320
  Serious: Yes (Hospitalization, Other)
  Sender: FDA-Public Use
  Company Number: AU-APOTEX-2017AP018210

PATIENT
  Age: 44 Year
  Sex: Male
  Weight: 80 kg

DRUGS (1)
  1. ACETAMINOPHEN. [Suspect]
     Active Substance: ACETAMINOPHEN
     Indication: PRODUCT USED FOR UNKNOWN INDICATION
     Dosage: 200 G (2.5 G/KG)
     Route: 048

REACTIONS (7)
  - Blood glucose increased [Recovered/Resolved]
  - Acidosis [Recovered/Resolved]
  - Blood lactic acid increased [Unknown]
  - Overdose [Unknown]
  - Drug level increased [Recovered/Resolved]
  - Body temperature decreased [Recovered/Resolved]
  - Metabolic acidosis [Unknown]
